FAERS Safety Report 9068631 (Version 1)
Quarter: 2013Q1

REPORT INFORMATION
  Report Type: Spontaneous
  Country: US (occurrence: None)
  Receive Date: 20130212
  Receipt Date: 20130212
  Transmission Date: 20140127
  Serious: No
  Sender: FDA-Public Use
  Company Number: None

PATIENT
  Sex: 0

DRUGS (5)
  1. PEGINTRON [Suspect]
     Indication: HEPATITIS
     Dosage: 150 MCG EVERY WEEK SQ
     Route: 058
     Dates: start: 20121016, end: 20130208
  2. RIBASPHERE RIBAPAK [Suspect]
     Indication: HEPATITIS C
     Dosage: 400 MG  TWICE DAILY  PO
     Route: 048
     Dates: start: 20121016, end: 20130208
  3. ATENOLOL [Concomitant]
  4. LACTOLUSE [Concomitant]
  5. SPIRONOLACTONE [Concomitant]

REACTIONS (2)
  - Calcinosis [None]
  - Fatigue [None]
